FAERS Safety Report 5259671-2 (Version None)
Quarter: 2007Q1

REPORT INFORMATION
  Report Type: 
  Country: None (occurrence: None)
  Receive Date: 20070307
  Receipt Date: 20070307
  Transmission Date: 20070707
  Serious: No
  Sender: FDA-Public Use
  Company Number: None

PATIENT
  Age: 81 Year
  Sex: Male
  Weight: 79 kg

DRUGS (3)
  1. LISINOPRIL AND HYDROCHLOROTHIAZIDE [Suspect]
     Indication: CORONARY ARTERY BYPASS
     Dosage: 20MG/ 12.5MG BID/QAM PO
     Route: 048
  2. LISINOPRIL AND HYDROCHLOROTHIAZIDE [Suspect]
     Indication: CORONARY ARTERY DISEASE
     Dosage: 20MG/ 12.5MG BID/QAM PO
     Route: 048
  3. TERAZOSIN [Suspect]
     Indication: PROSTATIC DISORDER
     Dosage: 1MG QHS PO
     Route: 048

REACTIONS (6)
  - ABDOMINAL PAIN LOWER [None]
  - DYSPNOEA [None]
  - HYPOTENSION [None]
  - INCISIONAL DRAINAGE [None]
  - ORAL INTAKE REDUCED [None]
  - PROCEDURAL PAIN [None]
